FAERS Safety Report 5164002-2 (Version None)
Quarter: 2006Q4

REPORT INFORMATION
  Report Type: 
  Country: None (occurrence: None)
  Receive Date: 20061204
  Receipt Date: 20010206
  Transmission Date: 20070319
  Serious: Yes (Hospitalization)
  Sender: FDA-Public Use
  Company Number: 10709400

PATIENT
  Age: 24 Hour
  Sex: Female
  Weight: 3 kg

DRUGS (7)
  1. ZERIT [Suspect]
     Dosage: THERAPY FROM CONCEPTION TO WEEK 7 OF GESTATION THEN WEEK 18 TO DELIVERY
     Route: 064
  2. ZERIT [Suspect]
     Route: 048
  3. EPIVIR [Suspect]
     Dosage: THERAPY FROM CONCEPTION TO WEEK 7 OF GESTATION THEN WEEK 18 TO DELIVERY
     Route: 064
  4. EPIVIR [Suspect]
     Dosage: ANTIRETROVIRAL THERAPY FOR 5 WEEKS WITH EPIVIR SYRUP
     Route: 048
  5. VIRACEPT [Suspect]
     Dosage: THERAPY FROM CONCEPTION TO WEEK 7 OF GESTATION THEN WEEK 18 TO DELIVERY
     Route: 064
  6. INTERFERON [Suspect]
     Dosage: RECEIVED FROM CONCEPTION TO WEEK 8 OF GESTATION
     Route: 064
  7. METHADONE HCL [Suspect]
     Dosage: RECEIVED FROM CONCEPTION TO DELIVERY
     Route: 064

REACTIONS (4)
  - ANAEMIA [None]
  - BLOOD LACTIC ACID INCREASED [None]
  - BLOOD TRIGLYCERIDES INCREASED [None]
  - HEPATOMEGALY [None]
